FAERS Safety Report 20950603 (Version 2)
Quarter: 2022Q2

REPORT INFORMATION
  Report Type: Report from Study
  Country: US (occurrence: US)
  Receive Date: 20220613
  Receipt Date: 20220623
  Transmission Date: 20220721
  Serious: Yes (Hospitalization)
  Sender: FDA-Public Use
  Company Number: US-BAYER-2022A079157

PATIENT
  Age: 37 Year
  Sex: Male
  Weight: 89.796 kg

DRUGS (6)
  1. ADEMPAS [Suspect]
     Active Substance: RIOCIGUAT
     Indication: Pulmonary arterial hypertension
     Dosage: UNK
     Dates: start: 20220531
  2. ADEMPAS [Suspect]
     Active Substance: RIOCIGUAT
     Indication: Pulmonary arterial hypertension
     Dosage: 2.5 MG, TID
     Route: 048
     Dates: start: 20220513
  3. ADEMPAS [Suspect]
     Active Substance: RIOCIGUAT
     Indication: Pulmonary arterial hypertension
     Dosage: 2.5 MG, TID
     Route: 048
  4. REMODULIN [Concomitant]
     Active Substance: TREPROSTINIL
  5. TYVASO [Concomitant]
     Active Substance: TREPROSTINIL
  6. OPSUMIT [Concomitant]
     Active Substance: MACITENTAN

REACTIONS (6)
  - Hospitalisation [None]
  - Bone pain [None]
  - Nausea [None]
  - Headache [None]
  - Diarrhoea [None]
  - Nocturnal dyspnoea [None]

NARRATIVE: CASE EVENT DATE: 20220601
